FAERS Safety Report 20542003 (Version 1)
Quarter: 2022Q1

REPORT INFORMATION
  Report Type: Report from Study
  Country: US (occurrence: US)
  Receive Date: 20220302
  Receipt Date: 20220302
  Transmission Date: 20220423
  Serious: Yes (Other)
  Sender: FDA-Public Use
  Company Number: US-JNJFOC-20211203178

PATIENT

DRUGS (2)
  1. STELARA [Suspect]
     Active Substance: USTEKINUMAB
     Indication: Crohn^s disease
     Route: 058
  2. STELARA [Suspect]
     Active Substance: USTEKINUMAB
     Dosage: RE-INDUCTION WITH USTEKINUMAB BETWEEN 2016 AND 2021
     Route: 042

REACTIONS (43)
  - Pneumonia [Unknown]
  - Cellulitis [Unknown]
  - Skin cancer [Unknown]
  - Clostridium difficile infection [Unknown]
  - Gastroenteritis Escherichia coli [Unknown]
  - Viral infection [Unknown]
  - Deep vein thrombosis [Unknown]
  - Small intestinal obstruction [Unknown]
  - Psoriatic arthropathy [Unknown]
  - Abortion spontaneous [Unknown]
  - Adrenal disorder [Unknown]
  - Bacterial vaginosis [Unknown]
  - Gastroenteritis [Unknown]
  - Tinea pedis [Unknown]
  - Pharyngitis streptococcal [Unknown]
  - Bartholin^s abscess [Unknown]
  - Diarrhoea infectious [Unknown]
  - Acne [Unknown]
  - Dizziness [Unknown]
  - Fatigue [Unknown]
  - Tooth infection [Unknown]
  - Upper respiratory tract infection [Unknown]
  - Sinusitis [Unknown]
  - Herpes zoster [Unknown]
  - Rash [Unknown]
  - Bronchitis [Unknown]
  - Injection site pain [Unknown]
  - Headache [Unknown]
  - Arthralgia [Unknown]
  - Adverse event [Unknown]
  - Exposure during pregnancy [Unknown]
  - Rectal prolapse [Unknown]
  - Anxiety [Unknown]
  - Onychoclasis [Unknown]
  - Gout [Unknown]
  - Gastrooesophageal reflux disease [Unknown]
  - Tinnitus [Unknown]
  - Ovarian cyst [Unknown]
  - Tooth impacted [Unknown]
  - Epicondylitis [Unknown]
  - Liver function test increased [Unknown]
  - Constipation [Unknown]
  - Confusional state [Unknown]
